FAERS Safety Report 14763320 (Version 1)
Quarter: 2018Q2

REPORT INFORMATION
  Report Type: Spontaneous
  Country: US (occurrence: US)
  Receive Date: 20180409
  Receipt Date: 20180409
  Transmission Date: 20180711
  Serious: Yes (Hospitalization)
  Sender: FDA-Public Use
  Company Number: None

PATIENT
  Age: 11 Year
  Sex: Male

DRUGS (17)
  1. COMPLETE FORMULATION GRAPE CHEW [Suspect]
     Active Substance: VITAMINS\ZINC
     Indication: CYSTIC FIBROSIS
     Route: 048
     Dates: start: 20180123
  2. PARI LC PLUS [Concomitant]
  3. STERILE WATER [Concomitant]
     Active Substance: WATER
  4. VITAMIN E [Concomitant]
     Active Substance: .ALPHA.-TOCOPHEROL
  5. PULMOZYME [Concomitant]
     Active Substance: DORNASE ALFA
  6. ALTERA [Concomitant]
  7. MEPHYTON [Concomitant]
     Active Substance: PHYTONADIONE
  8. VITAMIN D3 [Concomitant]
     Active Substance: CHOLECALCIFEROL
  9. QVAR [Concomitant]
     Active Substance: BECLOMETHASONE DIPROPIONATE
  10. VENTOLIN [Concomitant]
     Active Substance: ALBUTEROL SULFATE
  11. KALYDECO [Suspect]
     Active Substance: IVACAFTOR
     Indication: CYSTIC FIBROSIS
     Route: 048
     Dates: start: 20161123, end: 201801
  12. TOBI PODHALER [Concomitant]
     Active Substance: TOBRAMYCIN
  13. RANITIDINE. [Concomitant]
     Active Substance: RANITIDINE
  14. SODIUM CHLORIDE. [Concomitant]
     Active Substance: SODIUM CHLORIDE
  15. CREON [Concomitant]
     Active Substance: PANCRELIPASE AMYLASE\PANCRELIPASE LIPASE\PANCRELIPASE PROTEASE
  16. CAYSTON [Concomitant]
     Active Substance: AZTREONAM
  17. COLISTIMETHATE [Concomitant]
     Active Substance: COLISTIMETHATE SODIUM

REACTIONS (1)
  - Cystic fibrosis [None]

NARRATIVE: CASE EVENT DATE: 201803
